FAERS Safety Report 18526929 (Version 3)
Quarter: 2021Q1

REPORT INFORMATION
  Report Type: Spontaneous
  Country: US (occurrence: US)
  Receive Date: 20201120
  Receipt Date: 20210113
  Transmission Date: 20210419
  Serious: Yes (Death, Hospitalization, Other)
  Sender: FDA-Public Use
  Company Number: US-NOVOPROD-767452

PATIENT
  Age: 77 Year
  Sex: Male

DRUGS (1)
  1. TRESIBA [Suspect]
     Active Substance: INSULIN DEGLUDEC
     Indication: TYPE 2 DIABETES MELLITUS
     Dosage: 2 TIMES PER DAY ON A SLIDING SCALE AT MEALS
     Route: 058
     Dates: start: 20201105, end: 20201109

REACTIONS (6)
  - Renal failure [Not Recovered/Not Resolved]
  - Hypoglycaemia [Recovered/Resolved]
  - Inappropriate schedule of product administration [Recovered/Resolved]
  - Diabetes mellitus inadequate control [Unknown]
  - Oesophageal carcinoma [Fatal]
  - Neoplasm malignant [Unknown]

NARRATIVE: CASE EVENT DATE: 20201105
